FAERS Safety Report 10023762 (Version 1)
Quarter: 2014Q1

REPORT INFORMATION
  Report Type: Spontaneous
  Country: US (occurrence: None)
  Receive Date: 20140113
  Receipt Date: 20140113
  Transmission Date: 20141002
  Serious: Yes (Other)
  Sender: FDA-Public Use
  Company Number: AUR-APL-2013-10516

PATIENT
  Age: 33 Year
  Sex: Female
  Weight: 52.16 kg

DRUGS (3)
  1. QUETIAPINE [Suspect]
     Indication: SLEEP DISORDER
  2. WELLBUTRIN (BUPROPION HYDROCHLORIDE) [Concomitant]
  3. ADDERALL (OBETROL) [Concomitant]

REACTIONS (5)
  - Alopecia [None]
  - Alopecia [None]
  - Menstrual disorder [None]
  - Amnesia [None]
  - Drug effect decreased [None]
